FAERS Safety Report 7466466-8 (Version None)
Quarter: 2011Q2

REPORT INFORMATION
  Report Type: 
  Country: None (occurrence: None)
  Receive Date: 20110509
  Receipt Date: 20110428
  Transmission Date: 20111010
  Serious: Yes (Other)
  Sender: FDA-Public Use
  Company Number: CH-ASTRAZENECA-2011SE24929

PATIENT
  Age: 16 Year
  Sex: Female

DRUGS (3)
  1. SEROQUEL [Suspect]
     Indication: SCHIZOAFFECTIVE DISORDER BIPOLAR TYPE
     Dosage: 400 MG IN THE MORNING AND 400 MG IN THE EVENING
     Route: 048
     Dates: start: 20101201, end: 20110405
  2. FLUOXETINE HYDROCHLORIDE [Suspect]
     Indication: SCHIZOAFFECTIVE DISORDER BIPOLAR TYPE
     Route: 048
     Dates: start: 20101201, end: 20110405
  3. SEROQUEL [Suspect]
     Dosage: TWENTY 200 MG TABLETS
     Route: 048

REACTIONS (5)
  - SEDATION [None]
  - SUICIDE ATTEMPT [None]
  - OVERDOSE [None]
  - BLOOD CREATINE PHOSPHOKINASE INCREASED [None]
  - OFF LABEL USE [None]
